FAERS Safety Report 9624757 (Version 7)
Quarter: 2014Q2

REPORT INFORMATION
  Report Type: Report from Study
  Country: US (occurrence: US)
  Receive Date: 20131015
  Receipt Date: 20140612
  Transmission Date: 20141212
  Serious: Yes (Other)
  Sender: FDA-Public Use
  Company Number: US-PFIZER INC-2013283749

PATIENT
  Age: 48 Year
  Sex: Male
  Weight: 71.66 kg

DRUGS (1)
  1. BOSUTINIB [Suspect]
     Indication: CHRONIC MYELOID LEUKAEMIA
     Dosage: TABLETS; 500 MG, ONCE DAILY
     Route: 048
     Dates: start: 20090707

REACTIONS (2)
  - Second primary malignancy [Recovered/Resolved]
  - Cytogenetic abnormality [Recovered/Resolved]
